FAERS Safety Report 6169039-2 (Version None)
Quarter: 2009Q2

REPORT INFORMATION
  Report Type: 
  Country: None (occurrence: None)
  Receive Date: 20090427
  Receipt Date: 20090417
  Transmission Date: 20091009
  Serious: Yes (Hospitalization, Other)
  Sender: FDA-Public Use
  Company Number: US-CELGENEUS-163-20785-09041626

PATIENT
  Sex: Female

DRUGS (4)
  1. THALOMID [Suspect]
     Indication: MULTIPLE MYELOMA
     Route: 048
     Dates: start: 20080401
  2. THALOMID [Suspect]
     Dosage: 50MG-100MG-200MG
     Route: 048
     Dates: start: 20020301, end: 20041201
  3. THALOMID [Suspect]
     Route: 048
     Dates: start: 20050501, end: 20060101
  4. THALOMID [Suspect]
     Route: 048
     Dates: start: 20070801, end: 20071201

REACTIONS (5)
  - BONE MARROW FAILURE [None]
  - BRONCHITIS [None]
  - FLUID RETENTION [None]
  - INFECTION [None]
  - WHITE BLOOD CELL COUNT DECREASED [None]
